FAERS Safety Report 10885646 (Version 2)
Quarter: 2015Q1

REPORT INFORMATION
  Report Type: Spontaneous
  Country: US (occurrence: US)
  Receive Date: 20150304
  Receipt Date: 20150306
  Transmission Date: 20150721
  Serious: No
  Sender: FDA-Public Use
  Company Number: US-ASTRAZENECA-2015SE17355

PATIENT
  Age: 25018 Day
  Sex: Male
  Weight: 150.1 kg

DRUGS (1)
  1. BYDUREON [Suspect]
     Active Substance: EXENATIDE
     Indication: PRODUCT USED FOR UNKNOWN INDICATION
     Route: 065
     Dates: start: 20141003, end: 20150202

REACTIONS (2)
  - Ocular discomfort [Recovering/Resolving]
  - Vitreous detachment [Recovering/Resolving]

NARRATIVE: CASE EVENT DATE: 20141203
